FAERS Safety Report 4576772-2 (Version None)
Quarter: 2005Q1

REPORT INFORMATION
  Report Type: 
  Country: None (occurrence: None)
  Receive Date: 20050207
  Receipt Date: 20050125
  Transmission Date: 20050727
  Serious: Yes (Other)
  Sender: FDA-Public Use
  Company Number: 2004115459

PATIENT
  Sex: Male

DRUGS (2)
  1. CELEBREX [Suspect]
     Indication: ILL-DEFINED DISORDER
     Dosage: 200 MG 200 MG, EVERY OTHER WEEK)
     Dates: start: 19750101
  2. WARFARIN SODIUM [Concomitant]

REACTIONS (1)
  - NO ADVERSE DRUG EFFECT [None]
